FAERS Safety Report 6444400-7 (Version None)
Quarter: 2009Q4

REPORT INFORMATION
  Report Type: 
  Country: None (occurrence: None)
  Receive Date: 20091118
  Receipt Date: 20091109
  Transmission Date: 20100525
  Serious: Yes (Death)
  Sender: FDA-Public Use
  Company Number: IE-TEVA-214902ISR

PATIENT
  Age: 49 Year
  Sex: Male

DRUGS (22)
  1. FOLINIC ACID [Suspect]
     Indication: COLORECTAL CANCER
     Route: 042
     Dates: start: 20091104, end: 20091104
  2. 741030908 [Suspect]
     Indication: COLORECTAL CANCER
     Route: 042
     Dates: start: 20091104, end: 20091104
  3. FLUOROURACIL [Suspect]
     Indication: COLORECTAL CANCER
  4. PALONOSETRON HYDROCHLORIDE [Concomitant]
  5. ROSUVASTATIN [Concomitant]
  6. VALSARTAN [Concomitant]
  7. AVANDAMET [Concomitant]
  8. HYOSCINE HBR HYT [Concomitant]
  9. CENTRUM [Concomitant]
  10. HEPARIN SODIUM [Concomitant]
  11. MAG-LAX [Concomitant]
  12. LORAZEPAM [Concomitant]
  13. DEXAMETHASONE [Concomitant]
  14. ZOPICLONE [Concomitant]
  15. CYCLIZINE [Concomitant]
  16. ALBUTEROL [Concomitant]
  17. ALPRAZOLAM [Concomitant]
  18. CARBOCISTEINE [Concomitant]
  19. CALCIUM GLUCONATE [Concomitant]
  20. MAGNESIUM SULFATE [Concomitant]
  21. LANSOPRAZOLE [Concomitant]
  22. DOMPERIDONE [Concomitant]

REACTIONS (2)
  - DEATH [None]
  - TUMOUR LYSIS SYNDROME [None]
